FAERS Safety Report 7525391-4 (Version None)
Quarter: 2011Q2

REPORT INFORMATION
  Report Type: 
  Country: None (occurrence: None)
  Receive Date: 20110606
  Receipt Date: 20110524
  Transmission Date: 20111010
  Serious: Yes (Other)
  Sender: FDA-Public Use
  Company Number: BR-ASTRAZENECA-2010SE57325

PATIENT
  Age: 839 Month
  Sex: Female
  Weight: 74 kg

DRUGS (3)
  1. METFORMIN HYDROCHLORIDE [Concomitant]
     Indication: GLUCOSE TOLERANCE IMPAIRED
     Dates: start: 20101001
  2. LEVOTHYROXINE SODIUM [Concomitant]
     Indication: HYPOTHYROIDISM
     Route: 048
  3. ATACAND HCT [Suspect]
     Indication: HYPERTENSION
     Dosage: 16/12.5 MG DAILY
     Route: 048
     Dates: start: 20101001

REACTIONS (1)
  - MELAENA [None]
